FAERS Safety Report 12884681 (Version 1)
Quarter: 2016Q4

REPORT INFORMATION
  Report Type: Spontaneous
  Country: US (occurrence: US)
  Receive Date: 20161025
  Receipt Date: 20161025
  Transmission Date: 20170207
  Serious: Yes (Disabling)
  Sender: FDA-Public Use
  Company Number: None

PATIENT
  Age: 66 Year
  Sex: Female
  Weight: 48.6 kg

DRUGS (7)
  1. MIRAMAX [Concomitant]
  2. TAMIFLU [Suspect]
     Active Substance: OSELTAMIVIR PHOSPHATE
     Indication: INFLUENZA
     Dosage: ?          QUANTITY:10 CAPSULE(S);?
     Route: 048
     Dates: start: 20160407
  3. ASPIRIN. [Concomitant]
     Active Substance: ASPIRIN
  4. LEVOTHYROXINE. [Concomitant]
     Active Substance: LEVOTHYROXINE
  5. PROBIOTICS [Concomitant]
     Active Substance: PROBIOTICS NOS
  6. CALCIUM [Concomitant]
     Active Substance: CALCIUM
  7. VITAMIN B12 [Concomitant]
     Active Substance: CYANOCOBALAMIN

REACTIONS (1)
  - Anosmia [None]

NARRATIVE: CASE EVENT DATE: 20160407
